FAERS Safety Report 9208007 (Version 2)
Quarter: 2013Q2

REPORT INFORMATION
  Report Type: Spontaneous
  Country: JP (occurrence: JP)
  Receive Date: 20130403
  Receipt Date: 20130405
  Transmission Date: 20140414
  Serious: Yes (Hospitalization, Other)
  Sender: FDA-Public Use
  Company Number: JP-PFIZER INC-2013083626

PATIENT
  Age: 73 Year
  Sex: Female

DRUGS (6)
  1. JZOLOFT [Suspect]
     Dosage: 75 MG/DAY
     Route: 048
     Dates: start: 20130225, end: 2013
  2. JZOLOFT [Suspect]
     Dosage: 25 MG/DAY
     Route: 048
     Dates: start: 2013, end: 20130309
  3. REFLEX [Suspect]
     Dosage: 15 MG, DAILY
     Route: 048
     Dates: start: 20130225, end: 2013
  4. SULPIRIDE [Concomitant]
     Dosage: UNK
     Route: 048
  5. PREMINENT [Concomitant]
     Route: 048
  6. MYSLEE [Concomitant]
     Dosage: UNK

REACTIONS (7)
  - Depressed level of consciousness [Recovering/Resolving]
  - Drug withdrawal syndrome [Unknown]
  - Pyelonephritis [Unknown]
  - Gastrointestinal disorder [Unknown]
  - C-reactive protein abnormal [Unknown]
  - Decreased appetite [Unknown]
  - Refusal of treatment by relative [None]
